FAERS Safety Report 7938526 (Version 3)
Quarter: 2015Q2

REPORT INFORMATION
  Report Type: Spontaneous
  Country: US (occurrence: US)
  Receive Date: 20110510
  Receipt Date: 20150624
  Transmission Date: 20150821
  Serious: Yes (Life-Threatening, Hospitalization, Other)
  Sender: FDA-Public Use
  Company Number: US-ASTRAZENECA-2009UW00773

PATIENT
  Age: 56 Year
  Sex: Female
  Weight: 111.6 kg

DRUGS (17)
  1. SEROQUEL [Suspect]
     Active Substance: QUETIAPINE FUMARATE
     Indication: BIPOLAR DISORDER
     Route: 048
  2. SEROQUEL [Suspect]
     Active Substance: QUETIAPINE FUMARATE
     Indication: BIPOLAR DISORDER
     Dosage: 800 MG DAILY, QUETIAPINE FUMARATE
     Route: 048
     Dates: start: 2014
  3. LEVOTHYROXINE [Concomitant]
     Active Substance: LEVOTHYROXINE
  4. CELEBREX [Concomitant]
     Active Substance: CELECOXIB
  5. POTASSIUM [Concomitant]
     Active Substance: POTASSIUM
  6. PREVACID [Concomitant]
     Active Substance: LANSOPRAZOLE
  7. ZOCOR [Concomitant]
     Active Substance: SIMVASTATIN
  8. THYROID MEDICATION [Concomitant]
     Active Substance: UNSPECIFIED INGREDIENT
     Indication: THYROID DISORDER
  9. SEROQUEL [Suspect]
     Active Substance: QUETIAPINE FUMARATE
     Indication: BIPOLAR DISORDER
     Route: 048
     Dates: start: 2000, end: 2014
  10. SEROQUEL [Suspect]
     Active Substance: QUETIAPINE FUMARATE
     Indication: BIPOLAR I DISORDER
     Route: 048
  11. SEROQUEL [Suspect]
     Active Substance: QUETIAPINE FUMARATE
     Indication: SCHIZOPHRENIA
     Dosage: 800 MG DAILY, QUETIAPINE FUMARATE
     Route: 048
     Dates: start: 2014
  12. CELEXA [Concomitant]
     Active Substance: CITALOPRAM HYDROBROMIDE
  13. SEROQUEL [Suspect]
     Active Substance: QUETIAPINE FUMARATE
     Indication: BIPOLAR I DISORDER
     Route: 048
     Dates: start: 2000, end: 2014
  14. SEROQUEL [Suspect]
     Active Substance: QUETIAPINE FUMARATE
     Indication: SCHIZOPHRENIA
     Route: 048
  15. MAXZIDE [Concomitant]
     Active Substance: HYDROCHLOROTHIAZIDE\TRIAMTERENE
  16. SEROQUEL [Suspect]
     Active Substance: QUETIAPINE FUMARATE
     Indication: SCHIZOPHRENIA
     Route: 048
     Dates: start: 2000, end: 2014
  17. SEROQUEL [Suspect]
     Active Substance: QUETIAPINE FUMARATE
     Indication: BIPOLAR I DISORDER
     Dosage: 800 MG DAILY, QUETIAPINE FUMARATE
     Route: 048
     Dates: start: 2014

REACTIONS (13)
  - Adverse drug reaction [Unknown]
  - Drug dose omission [Unknown]
  - Crying [Unknown]
  - Tremor [Unknown]
  - Fatigue [Unknown]
  - Headache [Unknown]
  - Hypersomnia [Unknown]
  - Withdrawal syndrome [Unknown]
  - Seizure [Unknown]
  - Abnormal behaviour [Unknown]
  - Incorrect dose administered [Unknown]
  - Stress [Unknown]
  - Weight increased [Unknown]
